FAERS Safety Report 25614936 (Version 1)
Quarter: 2025Q3

REPORT INFORMATION
  Report Type: Report from Study
  Country: US (occurrence: US)
  Receive Date: 20250729
  Receipt Date: 20250729
  Transmission Date: 20251020
  Serious: Yes (Other)
  Sender: ABBVIE
  Company Number: US-ABBVIE-6385603

PATIENT
  Age: 24 Year
  Sex: Female

DRUGS (1)
  1. RINVOQ [Suspect]
     Active Substance: UPADACITINIB
     Indication: Psoriatic arthropathy
     Route: 048
     Dates: start: 202505

REACTIONS (3)
  - Systemic lupus erythematosus [Unknown]
  - Psoriatic arthropathy [Recovering/Resolving]
  - Oral disorder [Unknown]

NARRATIVE: CASE EVENT DATE: 20250101
